FAERS Safety Report 6823684-7 (Version None)
Quarter: 2010Q3

REPORT INFORMATION
  Report Type: 
  Country: None (occurrence: None)
  Receive Date: 20100708
  Receipt Date: 20060829
  Transmission Date: 20110219
  Serious: No
  Sender: FDA-Public Use
  Company Number: US-PFIZER INC-2006105683

PATIENT
  Sex: Male
  Weight: 87.54 kg

DRUGS (10)
  1. CHANTIX [Suspect]
     Indication: SMOKING CESSATION THERAPY
     Dates: start: 20060801
  2. ACIPHEX [Concomitant]
  3. IRON [Concomitant]
  4. COLAZAL [Concomitant]
  5. LIPITOR [Concomitant]
  6. TOPROL-XL [Concomitant]
  7. LISINOPRIL [Concomitant]
  8. ZOLOFT [Concomitant]
  9. PLAVIX [Concomitant]
  10. ACETYLSALICYLIC ACID [Concomitant]

REACTIONS (2)
  - FLATULENCE [None]
  - NAUSEA [None]
